FAERS Safety Report 24809876 (Version 1)
Quarter: 2025Q1

REPORT INFORMATION
  Report Type: Spontaneous
  Country: IT (occurrence: IT)
  Receive Date: 20250106
  Receipt Date: 20250106
  Transmission Date: 20250409
  Serious: Yes (Other)
  Sender: ALEXION PHARMACEUTICALS
  Company Number: None

PATIENT
  Age: 48 Year

DRUGS (4)
  1. LYNPARZA [Suspect]
     Active Substance: OLAPARIB
     Indication: Invasive ductal breast carcinoma
     Dosage: 150 MILLIGRAM, BID
  2. LYNPARZA [Suspect]
     Active Substance: OLAPARIB
     Dosage: 150 MILLIGRAM, BID
     Route: 048
  3. LYNPARZA [Suspect]
     Active Substance: OLAPARIB
     Dosage: 150 MILLIGRAM, BID
  4. LYNPARZA [Suspect]
     Active Substance: OLAPARIB
     Dosage: 150 MILLIGRAM, BID
     Route: 048

REACTIONS (1)
  - Skin exfoliation [Recovering/Resolving]
